FAERS Safety Report 11030603 (Version 2)
Quarter: 2015Q2

REPORT INFORMATION
  Report Type: Spontaneous
  Country: US (occurrence: US)
  Receive Date: 20150415
  Receipt Date: 20150415
  Transmission Date: 20150821
  Serious: Yes (Other)
  Sender: FDA-Public Use
  Company Number: US-BAYER-2015-116399

PATIENT
  Age: 73 Year
  Sex: Male

DRUGS (7)
  1. DIPHENHYDRAMINE [Concomitant]
     Active Substance: DIPHENHYDRAMINE
  2. METOCLOPRAMIDE. [Concomitant]
     Active Substance: METOCLOPRAMIDE
  3. SODIUM BICARBONATE. [Suspect]
     Active Substance: SODIUM BICARBONATE
     Indication: GASTRIC OPERATION
  4. ASPIRIN. [Concomitant]
     Active Substance: ASPIRIN
  5. SODIUM BICARBONATE. [Suspect]
     Active Substance: SODIUM BICARBONATE
     Indication: DYSPEPSIA
     Dosage: DAILY DOSE 10 DF
  6. PANTOPRAZOLE [Concomitant]
     Active Substance: PANTOPRAZOLE SODIUM
  7. HYDROCODONE/ACETAMINOPHEN [Concomitant]
     Active Substance: ACETAMINOPHEN\HYDROCODONE

REACTIONS (7)
  - Metabolic alkalosis [None]
  - Hypokalaemia [None]
  - Respiratory acidosis [None]
  - Asthenia [None]
  - Intentional overdose [None]
  - Respiratory muscle weakness [None]
  - Hypochloraemia [None]
